FAERS Safety Report 10049494 (Version 1)
Quarter: 2014Q2

REPORT INFORMATION
  Report Type: Spontaneous
  Country: US (occurrence: US)
  Receive Date: 20140401
  Receipt Date: 20140401
  Transmission Date: 20141212
  Serious: Yes (Other)
  Sender: FDA-Public Use
  Company Number: US-SA-2014SA038747

PATIENT
  Sex: Female

DRUGS (5)
  1. LUMIZYME [Suspect]
     Indication: GLYCOGEN STORAGE DISEASE TYPE II
     Route: 042
     Dates: start: 20100908
  2. CORTICOSTEROID NOS [Concomitant]
     Indication: PREMEDICATION
  3. ANALGESICS [Concomitant]
     Indication: PREMEDICATION
  4. ANTIINFLAMMATORY/ANTIRHEUMATIC PRODUCTS [Concomitant]
     Indication: PREMEDICATION
  5. ANTIEMETICS AND ANTINAUSEANTS [Concomitant]
     Indication: PREMEDICATION

REACTIONS (4)
  - Appendix disorder [Not Recovered/Not Resolved]
  - Pain [Not Recovered/Not Resolved]
  - Pneumonia [Not Recovered/Not Resolved]
  - Skin ulcer [Not Recovered/Not Resolved]
